FAERS Safety Report 5678753-4 (Version None)
Quarter: 2008Q1

REPORT INFORMATION
  Report Type: 
  Country: None (occurrence: None)
  Receive Date: 20080324
  Receipt Date: 20080324
  Transmission Date: 20080703
  Serious: No
  Sender: FDA-Public Use
  Company Number: None

PATIENT
  Sex: Male
  Weight: 90.7194 kg

DRUGS (1)
  1. ZONEGRAN [Suspect]
     Indication: EPILEPSY
     Dosage: 200 TID PO
     Route: 048
     Dates: start: 20050501, end: 20080321

REACTIONS (3)
  - DRUG INTOLERANCE [None]
  - DRUG LEVEL CHANGED [None]
  - PHARMACEUTICAL PRODUCT COMPLAINT [None]
